FAERS Safety Report 8471211-3 (Version None)
Quarter: 2012Q2

REPORT INFORMATION
  Report Type: 
  Country: None (occurrence: None)
  Receive Date: 20120627
  Receipt Date: 20120619
  Transmission Date: 20120825
  Serious: Yes (Hospitalization)
  Sender: FDA-Public Use
  Company Number: JP-ASTELLAS-2012JP005189

PATIENT
  Age: 77 Year

DRUGS (4)
  1. DUTASTERIDE [Concomitant]
     Dosage: UNK
     Route: 048
  2. MIRABEGRON [Suspect]
     Dosage: 50 MG, UNKNOWN/D
     Route: 048
  3. VESICARE [Suspect]
     Dosage: UNK
     Route: 048
  4. TOFRANIL [Concomitant]
     Dosage: UNK
     Route: 048

REACTIONS (1)
  - LIVER DISORDER [None]
